FAERS Safety Report 6176530-1 (Version None)
Quarter: 2009Q2

REPORT INFORMATION
  Report Type: 
  Country: None (occurrence: None)
  Receive Date: 20090501
  Receipt Date: 20090420
  Transmission Date: 20091009
  Serious: Yes (Other)
  Sender: FDA-Public Use
  Company Number: MX-ELI_LILLY_AND_COMPANY-MX200904004686

PATIENT
  Age: 82 Year
  Sex: Female
  Weight: 66 kg

DRUGS (5)
  1. FORTEO [Suspect]
     Indication: OSTEOPOROSIS
     Dosage: 20 UG, DAILY (1/D)
     Route: 058
     Dates: start: 20080701
  2. CELEBREX [Concomitant]
     Indication: ARTHRALGIA
     Dosage: 200 MG, AS NEEDED
     Route: 065
  3. PARACETAMOL [Concomitant]
     Indication: ARTHRALGIA
     Dosage: 500 MG, AS NEEDED
     Route: 065
  4. ASPIRINE PROTECT [Concomitant]
     Indication: PERIPHERAL VASCULAR DISORDER
     Dosage: 50 MG, DAILY (1/D)
     Route: 065
  5. METOPROLOL TARTRATE [Concomitant]
     Indication: CARDIAC DISORDER
     Dosage: 50 MG, DAILY (1/D)
     Route: 065

REACTIONS (3)
  - INJECTION SITE HAEMATOMA [None]
  - MACULOPATHY [None]
  - VISUAL ACUITY REDUCED [None]
